FAERS Safety Report 9465125 (Version 1)
Quarter: 2013Q3

REPORT INFORMATION
  Report Type: Spontaneous
  Country: CN (occurrence: CN)
  Receive Date: 20130819
  Receipt Date: 20130819
  Transmission Date: 20140515
  Serious: Yes (Other)
  Sender: FDA-Public Use
  Company Number: CN-PFIZER INC-2013231014

PATIENT
  Age: 45 Year
  Sex: Female
  Weight: 61 kg

DRUGS (1)
  1. CELEBREX [Suspect]
     Indication: NEURITIS
     Dosage: 1 CAPSULE, 1X/DAY
     Route: 048
     Dates: start: 20081210, end: 20081210

REACTIONS (4)
  - Hot flush [Recovered/Resolved]
  - Swelling [Recovered/Resolved]
  - Oliguria [Recovered/Resolved]
  - Erythema [Recovered/Resolved]
